FAERS Safety Report 4759166-6 (Version None)
Quarter: 2005Q3

REPORT INFORMATION
  Report Type: 
  Country: None (occurrence: None)
  Receive Date: 20050901
  Receipt Date: 20050817
  Transmission Date: 20060218
  Serious: Yes (Hospitalization)
  Sender: FDA-Public Use
  Company Number: GBWYE914617AUG05

PATIENT
  Age: 64 Year
  Sex: Female
  Weight: 60 kg

DRUGS (5)
  1. ENBREL [Suspect]
     Indication: RHEUMATOID ARTHRITIS
     Route: 058
     Dates: start: 20041228, end: 20050117
  2. PREDNISOLONE [Concomitant]
     Indication: RHEUMATOID ARTHRITIS
     Dosage: 10MG FREQUENCY UNKNOWN
     Route: 048
     Dates: start: 20040101
  3. FOSAMAX [Concomitant]
     Route: 048
     Dates: start: 20040101
  4. PANTOPRAZOLE [Concomitant]
     Dosage: 20MG FREQUENCY UNKNOWN
     Route: 048
     Dates: start: 20040101
  5. METHOTREXATE [Concomitant]
     Dates: start: 20000101

REACTIONS (2)
  - DYSPNOEA [None]
  - PULMONARY VASCULITIS [None]
